FAERS Safety Report 4574442-8 (Version None)
Quarter: 2005Q1

REPORT INFORMATION
  Report Type: 
  Country: None (occurrence: None)
  Receive Date: 20050204
  Receipt Date: 20050121
  Transmission Date: 20050727
  Serious: Yes (Hospitalization)
  Sender: FDA-Public Use
  Company Number: 2005017700

PATIENT
  Sex: Female
  Weight: 130.6359 kg

DRUGS (7)
  1. DETROL LA [Suspect]
     Indication: INCONTINENCE
     Dosage: SEE IMAGE
     Route: 048
     Dates: start: 20020101
  2. DIURETICS (DIURETICS) [Suspect]
     Indication: OEDEMA PERIPHERAL
     Dosage: ORAL
     Route: 048
  3. FUROSEMIDE [Suspect]
     Indication: OEDEMA PERIPHERAL
     Dosage: ORAL
     Route: 048
     Dates: end: 20040101
  4. HYDROCHLOROTHIAZIDE [Suspect]
     Indication: OEDEMA PERIPHERAL
     Dosage: ORAL
     Route: 048
     Dates: start: 20040101
  5. GLYBURIDE [Concomitant]
  6. CELEBREX [Concomitant]
  7. VIOXX [Concomitant]

REACTIONS (8)
  - ANAL ABSCESS [None]
  - BLOOD GLUCOSE INCREASED [None]
  - DRUG EFFECT DECREASED [None]
  - DRY MOUTH [None]
  - INFECTION [None]
  - MEDICATION ERROR [None]
  - RENAL DISORDER [None]
  - SUBCUTANEOUS ABSCESS [None]
